FAERS Safety Report 8584448-X (Version None)
Quarter: 2012Q3

REPORT INFORMATION
  Report Type: 
  Country: None (occurrence: None)
  Receive Date: 20120810
  Receipt Date: 20120727
  Transmission Date: 20120928
  Serious: Yes (Other)
  Sender: FDA-Public Use
  Company Number: GB-VALEANT-2012VX003482

PATIENT
  Age: 68 Year
  Sex: Male

DRUGS (3)
  1. TIMOLOL MALEATE [Suspect]
     Indication: GLAUCOMA
     Dosage: DOSE UNIT:
     Route: 047
     Dates: start: 20120401, end: 20120701
  2. LATANOPROST [Suspect]
     Indication: GLAUCOMA
     Dosage: DOSE UNIT:
     Route: 047
     Dates: start: 20120401, end: 20120701
  3. LATANOPROST [Concomitant]
     Route: 065

REACTIONS (2)
  - INTRAOCULAR PRESSURE INCREASED [None]
  - PRODUCT SUBSTITUTION ISSUE [None]
